FAERS Safety Report 7232986-4 (Version None)
Quarter: 2011Q1

REPORT INFORMATION
  Report Type: 
  Country: None (occurrence: None)
  Receive Date: 20110119
  Receipt Date: 20110105
  Transmission Date: 20110831
  Serious: Yes (Hospitalization)
  Sender: FDA-Public Use
  Company Number: US-ACTELION-A-US2009-27913

PATIENT

DRUGS (4)
  1. SOTALOL [Concomitant]
  2. BOSENTAN TABLET 125 MG US [Suspect]
     Dosage: 62.5 MG, BID
     Route: 048
     Dates: start: 20090714
  3. BOSENTAN TABLET 125 MG US [Suspect]
     Indication: PULMONARY ARTERIAL HYPERTENSION
     Dosage: 125 MG, BID
     Route: 048
  4. PLAVIX [Concomitant]

REACTIONS (8)
  - HOT FLUSH [None]
  - PACKED RED BLOOD CELL TRANSFUSION [None]
  - MALAISE [None]
  - CONDITION AGGRAVATED [None]
  - DYSPNOEA [None]
  - CONSTIPATION [None]
  - POOR QUALITY SLEEP [None]
  - NIGHT SWEATS [None]
